FAERS Safety Report 15617802 (Version 1)
Quarter: 2018Q4

REPORT INFORMATION
  Report Type: Spontaneous
  Country: GB (occurrence: GB)
  Receive Date: 20181114
  Receipt Date: 20181114
  Transmission Date: 20190205
  Serious: Yes (Other)
  Sender: FDA-Public Use
  Company Number: GB-FRESENIUS KABI-FK201811540

PATIENT
  Age: 73 Year
  Sex: Male

DRUGS (1)
  1. SODIUM CHLORIDE (MANUFACTURER UNKNOWN) [Suspect]
     Active Substance: SODIUM CHLORIDE
     Indication: PRODUCT USED FOR UNKNOWN INDICATION
     Dosage: 10ML AMPOULES USE AS DIRECTED
     Route: 065

REACTIONS (5)
  - Product preparation error [Unknown]
  - Dizziness [Recovered/Resolved]
  - Feeling hot [Recovered/Resolved]
  - Angina pectoris [Recovered/Resolved]
  - Erythema [Recovered/Resolved]
